FAERS Safety Report 13966269 (Version 2)
Quarter: 2017Q4

REPORT INFORMATION
  Report Type: Report from Study
  Country: TW (occurrence: TW)
  Receive Date: 20170913
  Receipt Date: 20171010
  Transmission Date: 20180320
  Serious: Yes (Death, Hospitalization)
  Sender: FDA-Public Use
  Company Number: TW-EXELIXIS-XL18417010418

PATIENT
  Age: 74 Year
  Sex: Male
  Weight: 61 kg

DRUGS (18)
  1. XL184 [Suspect]
     Active Substance: CABOZANTINIB
     Indication: HEPATOCELLULAR CARCINOMA
     Dosage: 60 MG, QD
     Route: 048
     Dates: start: 20170802, end: 20170831
  2. DILTIAZEM. [Concomitant]
     Active Substance: DILTIAZEM
  3. ASPIRIN. [Concomitant]
     Active Substance: ASPIRIN
  4. BENZBROMARONE [Concomitant]
     Active Substance: BENZBROMARONE
  5. FENOTEROL HYDROBROMIDE [Concomitant]
     Active Substance: FENOTEROL HYDROBROMIDE
  6. ACETAMINOPHEN. [Concomitant]
     Active Substance: ACETAMINOPHEN
  7. ISOSORBIDE 5-MONONITRATO GEN MED [Concomitant]
  8. THEOPHYLLINE [Concomitant]
     Active Substance: THEOPHYLLINE ANHYDROUS
  9. BAMBUTEROL [Concomitant]
     Active Substance: BAMBUTEROL
  10. CARVEDILOL. [Concomitant]
     Active Substance: CARVEDILOL
  11. SILYMARIN [Concomitant]
     Active Substance: DIETARY SUPPLEMENT\HERBALS\MILK THISTLE
  12. NEWZYME [Concomitant]
  13. PREDNISOLONE. [Concomitant]
     Active Substance: PREDNISOLONE
  14. BISMUTH SUBCARBONATE. [Concomitant]
     Active Substance: BISMUTH SUBCARBONATE
  15. METFORMIN [Concomitant]
     Active Substance: METFORMIN HYDROCHLORIDE
  16. DOXAZOSIN MESYLATE. [Concomitant]
     Active Substance: DOXAZOSIN MESYLATE
  17. PANTOPRAZOLE [Concomitant]
     Active Substance: PANTOPRAZOLE
  18. URSODEOXYCHOLIC ACID [Concomitant]
     Active Substance: URSODIOL

REACTIONS (2)
  - Hepatocellular carcinoma [Fatal]
  - Cardiogenic shock [Not Recovered/Not Resolved]

NARRATIVE: CASE EVENT DATE: 20170901
